FAERS Safety Report 14343499 (Version 1)
Quarter: 2018Q1

REPORT INFORMATION
  Report Type: Spontaneous
  Country: CH (occurrence: CH)
  Receive Date: 20180102
  Receipt Date: 20180102
  Transmission Date: 20180509
  Serious: Yes (Other)
  Sender: FDA-Public Use
  Company Number: CH-NOVOPROD-579537

PATIENT
  Sex: Male
  Weight: 4.62 kg

DRUGS (6)
  1. LANTUS [Suspect]
     Active Substance: INSULIN GLARGINE
     Indication: TYPE 2 DIABETES MELLITUS
     Dosage: 45 TO 58 IU 1X/DAY ACCORDING GLYCEMIC LEVEL
     Route: 064
     Dates: start: 20170210
  2. NOVORAPID [Suspect]
     Active Substance: INSULIN ASPART
     Indication: TYPE 2 DIABETES MELLITUS
     Dosage: DOSE ADMINISTERED BASED ON GLYCAEMIA LEVEL
     Route: 064
     Dates: start: 20170210
  3. TRESIBA [Suspect]
     Active Substance: INSULIN DEGLUDEC
     Indication: TYPE 2 DIABETES MELLITUS
     Dosage: APPROXIMATELY 32 IU 1X/DAY BASED ON THE GLYCAEMIA LEVELS.
     Route: 064
     Dates: end: 20170210
  4. MONURIL [Suspect]
     Active Substance: FOSFOMYCIN SODIUM
     Indication: CYSTITIS
     Dosage: UNK
     Route: 064
     Dates: start: 20170622, end: 20170622
  5. BOOSTRIX-IPV [Suspect]
     Active Substance: DIPHTHERIA AND TETANUS TOXOIDS AND ACELLULAR PERTUSSIS ADSORBED AND INACTIVATED POLIOVIRUS VACCINE
     Indication: PRODUCT USED FOR UNKNOWN INDICATION
     Dosage: UNK
     Route: 064
     Dates: start: 20170622, end: 20170622
  6. BYDUREON [Suspect]
     Active Substance: EXENATIDE
     Indication: TYPE 2 DIABETES MELLITUS
     Dosage: UNK
     Route: 064
     Dates: end: 20170202

REACTIONS (3)
  - Fracture of clavicle due to birth trauma [Unknown]
  - Foetal exposure during pregnancy [Recovered/Resolved]
  - Shoulder dystocia [Unknown]

NARRATIVE: CASE EVENT DATE: 20171207
